FAERS Safety Report 5531401-6 (Version None)
Quarter: 2007Q4

REPORT INFORMATION
  Report Type: 
  Country: None (occurrence: None)
  Receive Date: 20071203
  Receipt Date: 20071126
  Transmission Date: 20080405
  Serious: Yes (Life-Threatening)
  Sender: FDA-Public Use
  Company Number: FR-BRISTOL-MYERS SQUIBB COMPANY-14000137

PATIENT
  Age: 3 Year
  Sex: Male

DRUGS (3)
  1. CORGARD [Suspect]
     Indication: HYPERTENSION
     Dosage: RESTARTED AT 13MG EVERY 2 DAYS
     Route: 048
     Dates: start: 20061201
  2. ICAZ [Interacting]
     Indication: HYPERTENSION
     Dosage: REINTRODUCED AT DOSE 15MG DAILY
     Route: 048
     Dates: start: 20070327
  3. LOXEN [Interacting]
     Indication: HYPERTENSION
     Dosage: SOLUTION-10MG
     Route: 042
     Dates: start: 20071019

REACTIONS (3)
  - ACUTE PULMONARY OEDEMA [None]
  - DRUG INTERACTION [None]
  - LEFT VENTRICULAR FAILURE [None]
